FAERS Safety Report 8565752-8 (Version None)
Quarter: 2012Q3

REPORT INFORMATION
  Report Type: 
  Country: None (occurrence: None)
  Receive Date: 20120803
  Receipt Date: 20110927
  Transmission Date: 20120928
  Serious: No
  Sender: FDA-Public Use
  Company Number: US-ABBOTT-11P-163-0858168-00

PATIENT
  Sex: Female
  Weight: 60.382 kg

DRUGS (11)
  1. ZOCOR [Concomitant]
     Indication: PRODUCT USED FOR UNKNOWN INDICATION
  2. ACTOS [Concomitant]
     Indication: PRODUCT USED FOR UNKNOWN INDICATION
  3. AMARYLL [Concomitant]
     Indication: PRODUCT USED FOR UNKNOWN INDICATION
  4. POTASSIUM [Concomitant]
     Indication: PRODUCT USED FOR UNKNOWN INDICATION
  5. AMLODIPINE [Concomitant]
     Indication: PRODUCT USED FOR UNKNOWN INDICATION
  6. ASPIRIN [Concomitant]
     Indication: PRODUCT USED FOR UNKNOWN INDICATION
  7. GLUCOPHAGE [Concomitant]
     Indication: PRODUCT USED FOR UNKNOWN INDICATION
  8. ZESTRIL [Concomitant]
     Indication: PRODUCT USED FOR UNKNOWN INDICATION
  9. NIASPAN [Suspect]
     Indication: PRODUCT USED FOR UNKNOWN INDICATION
  10. LASIX [Concomitant]
     Indication: PRODUCT USED FOR UNKNOWN INDICATION
  11. COREG [Concomitant]
     Indication: PRODUCT USED FOR UNKNOWN INDICATION

REACTIONS (1)
  - DIZZINESS [None]
